FAERS Safety Report 20703234 (Version 1)
Quarter: 2022Q2

REPORT INFORMATION
  Report Type: Spontaneous
  Country: US (occurrence: US)
  Receive Date: 20220413
  Receipt Date: 20220413
  Transmission Date: 20220721
  Serious: No
  Sender: FDA-Public Use
  Company Number: US-ARGENX-2022-ARGX-US000375

PATIENT

DRUGS (1)
  1. VYVGART [Suspect]
     Active Substance: EFGARTIGIMOD ALFA-FCAB
     Indication: Myasthenia gravis

REACTIONS (6)
  - Throat irritation [Unknown]
  - Dysphagia [Unknown]
  - Muscle twitching [Unknown]
  - Diplopia [Unknown]
  - Anxiety [Unknown]
  - Flushing [Unknown]

NARRATIVE: CASE EVENT DATE: 20220302
